FAERS Safety Report 9439938 (Version 2)
Quarter: 2013Q3

REPORT INFORMATION
  Report Type: Report from Study
  Country: FR (occurrence: FR)
  Receive Date: 20130805
  Receipt Date: 20130823
  Transmission Date: 20140515
  Serious: Yes (Other)
  Sender: FDA-Public Use
  Company Number: PHHY2013FR081984

PATIENT
  Age: 48 Year
  Sex: Female
  Weight: 89 kg

DRUGS (3)
  1. MYCOPHENOLIC ACID [Suspect]
     Indication: RENAL TRANSPLANT
     Dosage: 720 MG, BID
     Route: 048
     Dates: start: 20130223
  2. NEORAL [Suspect]
     Indication: RENAL TRANSPLANT
     Dosage: 100 MG, BID
     Route: 048
     Dates: start: 20130325, end: 20130605
  3. CORTANCYL [Concomitant]
     Indication: RENAL TRANSPLANT
     Dosage: 10 MG, QD
     Dates: start: 20130223

REACTIONS (1)
  - Cerebral venous thrombosis [Recovered/Resolved]
